FAERS Safety Report 19474878 (Version 7)
Quarter: 2022Q3

REPORT INFORMATION
  Report Type: Spontaneous
  Country: US (occurrence: US)
  Receive Date: 20210629
  Receipt Date: 20220725
  Transmission Date: 20221026
  Serious: No
  Sender: FDA-Public Use
  Company Number: US-SA-SAC20210625000143

PATIENT
  Age: 67 Year
  Sex: Female

DRUGS (5)
  1. DUPIXENT [Suspect]
     Active Substance: DUPILUMAB
     Indication: Dermatitis atopic
     Dosage: 300 MG, QOW
     Route: 058
     Dates: start: 202104
  2. CYCLOSPORINE [Suspect]
     Active Substance: CYCLOSPORINE
     Dates: end: 20210617
  3. CEPHALEXIN [Concomitant]
     Active Substance: CEPHALEXIN
     Indication: Infection prophylaxis
  4. ROSUVASTATIN [Concomitant]
     Active Substance: ROSUVASTATIN
  5. PROBIOTICS NOS [Concomitant]
     Active Substance: PROBIOTICS NOS

REACTIONS (2)
  - Rash pruritic [Unknown]
  - Skin neoplasm excision [Unknown]

NARRATIVE: CASE EVENT DATE: 20210916
